FAERS Safety Report 8825123 (Version 2)
Quarter: 2012Q4

REPORT INFORMATION
  Report Type: 
  Country: US (occurrence: US)
  Receive Date: 20121004
  Receipt Date: 20121031
  Transmission Date: 20130627
  Serious: Yes (Life-Threatening, Hospitalization, Other)
  Sender: FDA-Public Use
  Company Number: US-ROCHE-1123785

PATIENT
  Sex: Female

DRUGS (4)
  1. RITUXAN [Suspect]
     Indication: SYSTEMIC LUPUS ERYTHEMATOSUS
     Route: 042
     Dates: start: 20070813
  2. RITUXAN [Suspect]
     Indication: SYSTEMIC LUPUS ERYTHEMATOSUS
  3. RITUXAN [Suspect]
     Indication: LUPUS ENDOCARDITIS
  4. RITUXAN [Suspect]
     Indication: RHEUMATOID ARTHRITIS

REACTIONS (3)
  - Coma [Unknown]
  - Meningitis bacterial [Unknown]
  - Sepsis [Unknown]
